FAERS Safety Report 8699594 (Version 2)
Quarter: 2013Q2

REPORT INFORMATION
  Report Type: Spontaneous
  Country: US (occurrence: None)
  Receive Date: 20120718
  Receipt Date: 20130405
  Transmission Date: 20140414
  Serious: Yes (Other)
  Sender: FDA-Public Use
  Company Number: ADR-2012-01294

PATIENT
  Sex: Female

DRUGS (1)
  1. LIORESAL [Suspect]
     Indication: CEREBRAL PALSY

REACTIONS (5)
  - DRUG INEFFECTIVE [None]
  - Device breakage [None]
  - IMPLANT SITE EFFUSION [None]
  - TWIDDLER^S SYNDROME [None]
  - Seroma [None]
